FAERS Safety Report 4978723-5 (Version None)
Quarter: 2006Q2

REPORT INFORMATION
  Report Type: 
  Country: None (occurrence: None)
  Receive Date: 20060420
  Receipt Date: 20060412
  Transmission Date: 20061013
  Serious: Yes (Hospitalization, Other)
  Sender: FDA-Public Use
  Company Number: US-MERCK-0604USA01984

PATIENT
  Age: 50 Year
  Sex: Female

DRUGS (3)
  1. ELSPAR [Suspect]
     Indication: ACUTE LYMPHOCYTIC LEUKAEMIA
     Route: 058
     Dates: start: 20060317, end: 20060403
  2. VINCRISTINE SULFATE [Concomitant]
     Route: 065
  3. ANTIMICROBIAL (UNSPECIFIED) [Concomitant]
     Route: 065

REACTIONS (3)
  - ASTHENIA [None]
  - INJECTION SITE RASH [None]
  - SERUM SICKNESS [None]
